FAERS Safety Report 12991198 (Version 2)
Quarter: 2019Q3

REPORT INFORMATION
  Report Type: Spontaneous
  Country: US (occurrence: US)
  Receive Date: 20161201
  Receipt Date: 20190904
  Transmission Date: 20191004
  Serious: No
  Sender: FDA-Public Use
  Company Number: US-PURDUE-USA-2016-0134408

PATIENT
  Age: 51 Year
  Sex: Female

DRUGS (3)
  1. OXYCODONE/ ACETAMINOPHEN TABLETS [Suspect]
     Active Substance: ACETAMINOPHEN\OXYCODONE HYDROCHLORIDE
     Indication: PAIN
     Dosage: 10/325MG, 1/2-1 TAB, QID
     Route: 048
     Dates: start: 20181108
  2. OXYCODONE/ ACETAMINOPHEN TABLETS [Suspect]
     Active Substance: ACETAMINOPHEN\OXYCODONE HYDROCHLORIDE
     Dosage: 7.5/325 MG TABLET, QID
     Route: 048
     Dates: start: 201904
  3. OXYCODONE/ ACETAMINOPHEN TABLETS [Suspect]
     Active Substance: ACETAMINOPHEN\OXYCODONE HYDROCHLORIDE
     Dosage: 10/325 MG, 1/2-1 TAB, QID
     Route: 048
     Dates: start: 20161016

REACTIONS (16)
  - Nausea [Not Recovered/Not Resolved]
  - Dyskinesia [Not Recovered/Not Resolved]
  - Drug ineffective [Unknown]
  - Product physical issue [Unknown]
  - Unevaluable event [Not Recovered/Not Resolved]
  - Nasal dryness [Not Recovered/Not Resolved]
  - Pain [Not Recovered/Not Resolved]
  - Therapeutic product effect decreased [Unknown]
  - Wrong technique in product usage process [Not Recovered/Not Resolved]
  - Headache [Not Recovered/Not Resolved]
  - Diarrhoea [Not Recovered/Not Resolved]
  - Incorrect dose administered [Unknown]
  - Malaise [Not Recovered/Not Resolved]
  - Taste disorder [Unknown]
  - Arthralgia [Not Recovered/Not Resolved]
  - Musculoskeletal chest pain [Not Recovered/Not Resolved]

NARRATIVE: CASE EVENT DATE: 2016
